FAERS Safety Report 5112504-7 (Version None)
Quarter: 2006Q3

REPORT INFORMATION
  Report Type: 
  Country: None (occurrence: None)
  Receive Date: 20060920
  Receipt Date: 20060920
  Transmission Date: 20061208
  Serious: Yes (Other)
  Sender: FDA-Public Use
  Company Number: None

PATIENT
  Sex: Female
  Weight: 81.1939 kg

DRUGS (2)
  1. ALEVE [Suspect]
     Indication: ARTHRALGIA
     Dosage: (DURATION: ABOUT A WEEK)
  2. ALEVE [Suspect]
     Indication: MYALGIA
     Dosage: (DURATION: ABOUT A WEEK)

REACTIONS (1)
  - FAECES DISCOLOURED [None]
